FAERS Safety Report 23966415 (Version 1)
Quarter: 2024Q2

REPORT INFORMATION
  Report Type: Spontaneous
  Country: US (occurrence: US)
  Receive Date: 20240612
  Receipt Date: 20240612
  Transmission Date: 20240715
  Serious: No
  Sender: FDA-Public Use
  Company Number: US-PFIZER INC-PV202400075579

PATIENT
  Age: 63 Year
  Sex: Female

DRUGS (7)
  1. IBRANCE [Suspect]
     Active Substance: PALBOCICLIB
     Indication: Breast cancer
     Dosage: 125 MG, CYCLIC (1 TABLET FOR 21 DAYS, THEN OFF FOR 7 DAYS)
     Route: 048
     Dates: start: 20240121, end: 20240601
  2. ALBUTEROL SULFATE [Concomitant]
     Active Substance: ALBUTEROL SULFATE
  3. EXEMESTANE [Concomitant]
     Active Substance: EXEMESTANE
  4. EZETIMIBE [Concomitant]
     Active Substance: EZETIMIBE
  5. JANUMET [Concomitant]
     Active Substance: METFORMIN HYDROCHLORIDE\SITAGLIPTIN PHOSPHATE
  6. KISQALI [Concomitant]
     Active Substance: RIBOCICLIB
  7. VITAMIN D2 [Concomitant]
     Active Substance: ERGOCALCIFEROL

REACTIONS (2)
  - White blood cell count decreased [Recovered/Resolved]
  - Infection [Recovered/Resolved]
